FAERS Safety Report 8646559 (Version 10)
Quarter: 2014Q4

REPORT INFORMATION
  Report Type: Spontaneous
  Country: US (occurrence: US)
  Receive Date: 20120702
  Receipt Date: 20141202
  Transmission Date: 20150529
  Serious: Yes (Hospitalization, Disabling, Other)
  Sender: FDA-Public Use
  Company Number: US-009507513-1206USA04708

PATIENT
  Sex: Female

DRUGS (3)
  1. ALENDRONATE SODIUM. [Suspect]
     Active Substance: ALENDRONATE SODIUM
     Dosage: 70 MG, QW
     Dates: start: 20050418
  2. FOSAMAX [Suspect]
     Active Substance: ALENDRONATE SODIUM
     Dosage: 70 MG, QW
     Route: 048
     Dates: start: 20010702
  3. FOSAMAX [Suspect]
     Active Substance: ALENDRONATE SODIUM
     Indication: OSTEOPOROSIS
     Dosage: 35 MG, QW
     Route: 048
     Dates: start: 20010705

REACTIONS (40)
  - Open reduction of fracture [Unknown]
  - Infected bunion [Unknown]
  - Restless legs syndrome [Unknown]
  - Surgical failure [Unknown]
  - Anaemia [Unknown]
  - Low turnover osteopathy [Unknown]
  - Oral infection [Unknown]
  - Femur fracture [Unknown]
  - Knee arthroplasty [Unknown]
  - Cellulitis [Unknown]
  - Rib fracture [Unknown]
  - Arthritis [Unknown]
  - Hypertension [Unknown]
  - Urinary tract infection [Unknown]
  - Hip fracture [Unknown]
  - Cholecystectomy [Unknown]
  - Exposed bone in jaw [Unknown]
  - Haemorrhagic anaemia [Unknown]
  - Constipation [Unknown]
  - Bone graft [Unknown]
  - Fracture nonunion [Unknown]
  - Stomatitis [Unknown]
  - Treatment noncompliance [Unknown]
  - Anaemia [Unknown]
  - Anxiety [Recovered/Resolved]
  - Beta haemolytic streptococcal infection [Unknown]
  - Internal fixation of fracture [Unknown]
  - Osteoporosis [Unknown]
  - Intraocular lens implant [Unknown]
  - Anxiety [Unknown]
  - Fall [Unknown]
  - Infection [Unknown]
  - Cellulitis [Recovered/Resolved]
  - Vitamin D deficiency [Unknown]
  - Cataract [Unknown]
  - Cataract operation [Unknown]
  - Depression [Unknown]
  - Pulmonary fibrosis [Unknown]
  - Tuberculin test positive [Unknown]
  - Device failure [Unknown]

NARRATIVE: CASE EVENT DATE: 2002
